FAERS Safety Report 8364153-5 (Version None)
Quarter: 2012Q2

REPORT INFORMATION
  Report Type: 
  Country: None (occurrence: None)
  Receive Date: 20120516
  Receipt Date: 20110509
  Transmission Date: 20120825
  Serious: Yes (Death)
  Sender: FDA-Public Use
  Company Number: IT-BAUSCH-2012BL003135

PATIENT
  Sex: Male

DRUGS (1)
  1. DEXAMETHASONE [Suspect]
     Indication: PRODUCT USED FOR UNKNOWN INDICATION
     Route: 065

REACTIONS (3)
  - PNEUMONIA CRYPTOCOCCAL [None]
  - RESPIRATORY FAILURE [None]
  - BACTERIAL SEPSIS [None]
